FAERS Safety Report 16916858 (Version 2)
Quarter: 2020Q4

REPORT INFORMATION
  Report Type: Spontaneous
  Country: GE (occurrence: GE)
  Receive Date: 20191015
  Receipt Date: 20201007
  Transmission Date: 20210113
  Serious: Yes (Hospitalization, Other)
  Sender: FDA-Public Use
  Company Number: GE-SUN PHARMACEUTICAL INDUSTRIES LTD-2019R1-223422

PATIENT
  Age: 65 Year
  Sex: Male

DRUGS (3)
  1. AMLODIPINE [Suspect]
     Active Substance: AMLODIPINE BESYLATE
     Indication: PRODUCT USED FOR UNKNOWN INDICATION
     Dosage: THIRTY TABLET
     Route: 065
  2. CARVEDILOL. [Suspect]
     Active Substance: CARVEDILOL
     Indication: PRODUCT USED FOR UNKNOWN INDICATION
     Dosage: SIXTY TABLET
     Route: 065
  3. LISINOPRIL AND HYDROCHLOROTHIAZIDE [Suspect]
     Active Substance: HYDROCHLOROTHIAZIDE\LISINOPRIL
     Indication: PRODUCT USED FOR UNKNOWN INDICATION
     Dosage: UNK
     Route: 065

REACTIONS (14)
  - Diastolic dysfunction [Recovering/Resolving]
  - Ventricular dyskinesia [Recovering/Resolving]
  - Bundle branch block [Recovering/Resolving]
  - Bradycardia [Recovering/Resolving]
  - Overdose [Unknown]
  - Shock [Recovering/Resolving]
  - Heart rate abnormal [Recovering/Resolving]
  - Blood creatinine abnormal [Recovering/Resolving]
  - QRS axis abnormal [Recovering/Resolving]
  - Mean arterial pressure decreased [Recovering/Resolving]
  - Suicide attempt [Unknown]
  - Atrioventricular block first degree [Recovering/Resolving]
  - Electrocardiogram QT prolonged [Recovering/Resolving]
  - Hypotension [Recovering/Resolving]
